FAERS Safety Report 24732351 (Version 1)
Quarter: 2024Q4

REPORT INFORMATION
  Report Type: Other
  Country: CA (occurrence: CA)
  Receive Date: 20241213
  Receipt Date: 20241213
  Transmission Date: 20250115
  Serious: Yes (Congenital Anomaly)
  Sender: PFIZER
  Company Number: CA-PFIZER INC-202400321398

PATIENT

DRUGS (1)
  1. ADALIMUMAB [Suspect]
     Active Substance: ADALIMUMAB
     Indication: Inflammatory bowel disease
     Dosage: 40 MG, 1 EVERY 2 WEEKS
     Route: 064

REACTIONS (2)
  - Maternal exposure during pregnancy [Unknown]
  - Multiple congenital abnormalities [Unknown]
